FAERS Safety Report 12879637 (Version 3)
Quarter: 2017Q1

REPORT INFORMATION
  Report Type: Spontaneous
  Country: US (occurrence: US)
  Receive Date: 20161025
  Receipt Date: 20170119
  Transmission Date: 20170428
  Serious: Yes (Hospitalization, Other)
  Sender: FDA-Public Use
  Company Number: US-AMGEN-USASP2016146752

PATIENT
  Age: 74 Year
  Sex: Male

DRUGS (4)
  1. IMLYGIC [Suspect]
     Active Substance: TALIMOGENE LAHERPAREPVEC
     Dosage: UNK, 2 DOSES (TOTAL OF 8 ML) OF IMLYGIC 108
     Route: 065
  2. RANEXA [Suspect]
     Active Substance: RANOLAZINE
     Indication: PRODUCT USED FOR UNKNOWN INDICATION
     Dosage: 1000 MG, Q12H (EVERY 12 HOURS)
     Route: 065
     Dates: start: 20161017, end: 2016
  3. IMLYGIC [Suspect]
     Active Substance: TALIMOGENE LAHERPAREPVEC
     Dosage: 2 ML, UNK
     Route: 065
     Dates: start: 201610
  4. IMLYGIC [Suspect]
     Active Substance: TALIMOGENE LAHERPAREPVEC
     Indication: MALIGNANT MELANOMA
     Dosage: 4 ML, UNK
     Route: 065
     Dates: start: 20160602

REACTIONS (5)
  - Neoplasm progression [Unknown]
  - Renal impairment [Unknown]
  - Tumour necrosis [Unknown]
  - Cardiac failure congestive [Unknown]
  - Renal failure [Unknown]

NARRATIVE: CASE EVENT DATE: 2016
